FAERS Safety Report 23897118 (Version 1)
Quarter: 2024Q2

REPORT INFORMATION
  Report Type: Other
  Country: US (occurrence: None)
  Receive Date: 20240524
  Receipt Date: 20240524
  Transmission Date: 20240715
  Serious: Yes (Other)
  Sender: FDA-Public Use
  Company Number: US-ROCHE-3566093

PATIENT

DRUGS (13)
  1. ATEZOLIZUMAB [Suspect]
     Active Substance: ATEZOLIZUMAB
     Indication: Non-small cell lung cancer
     Route: 065
  2. MYCOPHENOLATE MOFETIL [Suspect]
     Active Substance: MYCOPHENOLATE MOFETIL
     Indication: Pancreatitis
     Route: 065
  3. TOCILIZUMAB [Suspect]
     Active Substance: TOCILIZUMAB
     Indication: Immunosuppression
     Route: 065
  4. PEMBROLIZUMAB [Suspect]
     Active Substance: PEMBROLIZUMAB
     Indication: Non-small cell lung cancer
     Route: 065
  5. NIVOLUMAB [Suspect]
     Active Substance: NIVOLUMAB
     Indication: Non-small cell lung cancer
     Route: 065
  6. AVELUMAB [Suspect]
     Active Substance: AVELUMAB
     Indication: Non-small cell lung cancer
     Route: 065
  7. DURVALUMAB [Suspect]
     Active Substance: DURVALUMAB
     Indication: Non-small cell lung cancer
     Route: 065
  8. IPILIMUMAB [Suspect]
     Active Substance: IPILIMUMAB
     Indication: Non-small cell lung cancer
     Route: 065
  9. INFLIXIMAB [Suspect]
     Active Substance: INFLIXIMAB
     Indication: Pancreatitis
     Route: 065
  10. VEDOLIZUMAB [Suspect]
     Active Substance: VEDOLIZUMAB
     Indication: Colitis
     Route: 065
  11. METHOTREXATE [Suspect]
     Active Substance: METHOTREXATE
     Indication: Immunosuppression
     Route: 065
  12. ADALIMUMAB [Suspect]
     Active Substance: ADALIMUMAB\ISOPROPYL ALCOHOL
     Indication: Immunosuppression
     Route: 065
  13. PREDNISONE [Suspect]
     Active Substance: PREDNISONE
     Indication: Immunosuppression
     Route: 065

REACTIONS (32)
  - Pneumonitis [Unknown]
  - Pancreatitis [Unknown]
  - Autoimmune haemolytic anaemia [Unknown]
  - Pancytopenia [Unknown]
  - Obliterative bronchiolitis [Unknown]
  - Osteomyelitis [Unknown]
  - Cytokine release syndrome [Unknown]
  - Colitis [Unknown]
  - Hepatitis [Unknown]
  - Rash [Unknown]
  - Hypophysitis [Unknown]
  - Thyroiditis [Unknown]
  - Adrenal insufficiency [Unknown]
  - Hyponatraemia [Unknown]
  - Arthritis [Unknown]
  - Iritis [Unknown]
  - Uveitis [Unknown]
  - Sjogren^s syndrome [Unknown]
  - Myocarditis [Unknown]
  - Mucosal inflammation [Unknown]
  - Myasthenia gravis [Unknown]
  - Neuritis [Unknown]
  - Nephritis [Unknown]
  - Dermatitis [Unknown]
  - Listeriosis [Recovered/Resolved]
  - Pneumocystis jirovecii pneumonia [Recovered/Resolved]
  - Varicella zoster virus infection [Recovered/Resolved]
  - Oral candidiasis [Recovered/Resolved]
  - Pneumonia [Recovered/Resolved]
  - Clostridium difficile infection [Recovered/Resolved]
  - Urinary tract infection [Recovered/Resolved]
  - Bacterial infection [Recovered/Resolved]
